FAERS Safety Report 17940033 (Version 1)
Quarter: 2020Q2

REPORT INFORMATION
  Report Type: Spontaneous
  Country: BR (occurrence: BR)
  Receive Date: 20200625
  Receipt Date: 20200625
  Transmission Date: 20200714
  Serious: Yes (Other)
  Sender: FDA-Public Use
  Company Number: BR-SA-2020SA133873

PATIENT

DRUGS (3)
  1. NOVALGINA [Concomitant]
     Active Substance: METAMIZOLE SODIUM
     Indication: BACK PAIN
  2. CLOPIDOGREL BISULFATE. [Suspect]
     Active Substance: CLOPIDOGREL BISULFATE
     Indication: ANTICOAGULANT THERAPY
     Dosage: 0.5 DF
     Route: 065
  3. PREGABALIN. [Suspect]
     Active Substance: PREGABALIN
     Dosage: UNK UNK, HS
     Route: 065

REACTIONS (12)
  - Anxiety [Unknown]
  - Headache [Unknown]
  - Middle insomnia [Unknown]
  - Palpitations [Recovering/Resolving]
  - Drug ineffective [Recovering/Resolving]
  - Throat tightness [Not Recovered/Not Resolved]
  - Condition aggravated [Not Recovered/Not Resolved]
  - Malaise [Unknown]
  - Pain [Not Recovered/Not Resolved]
  - Arrhythmia [Unknown]
  - Back pain [Not Recovered/Not Resolved]
  - Intentional product use issue [Unknown]
